FAERS Safety Report 6393203-0 (Version None)
Quarter: 2009Q4

REPORT INFORMATION
  Report Type: 
  Country: None (occurrence: None)
  Receive Date: 20091008
  Receipt Date: 20091002
  Transmission Date: 20100525
  Serious: Yes (Other)
  Sender: FDA-Public Use
  Company Number: GB-BRISTOL-MYERS SQUIBB COMPANY-14746564

PATIENT
  Age: 54 Year
  Sex: Male
  Weight: 69 kg

DRUGS (7)
  1. SUSTIVA [Suspect]
     Indication: HIV INFECTION
     Dosage: 600MG AT NIGHT
     Route: 048
     Dates: start: 20090414
  2. ABACAVIR [Suspect]
     Indication: ANTIRETROVIRAL THERAPY
     Route: 048
     Dates: start: 20090414
  3. LAMIVUDINE [Suspect]
     Indication: ANTIRETROVIRAL THERAPY
     Route: 048
     Dates: start: 20090414
  4. COTRIM [Suspect]
     Indication: ANTIFUNGAL PROPHYLAXIS
     Route: 048
     Dates: start: 20090303
  5. TRAMADOL [Concomitant]
     Indication: PAIN
  6. METOCLOPRAMIDE [Concomitant]
     Indication: NAUSEA
  7. SENOKOT [Concomitant]
     Indication: CONSTIPATION

REACTIONS (1)
  - NON-HODGKIN'S LYMPHOMA [None]
